FAERS Safety Report 6649001-3 (Version None)
Quarter: 2010Q1

REPORT INFORMATION
  Report Type: 
  Country: None (occurrence: None)
  Receive Date: 20100319
  Receipt Date: 20100309
  Transmission Date: 20100710
  Serious: Yes (Death)
  Sender: FDA-Public Use
  Company Number: 008941

PATIENT
  Age: 64 Year
  Sex: Male

DRUGS (4)
  1. BUSULFEX [Suspect]
     Indication: STEM CELL TRANSPLANT
  2. IDARUBICIN HCL [Concomitant]
  3. CYTARABINE [Concomitant]
  4. FLUDARABINE PHOSPHATE [Concomitant]

REACTIONS (12)
  - ALTERED STATE OF CONSCIOUSNESS [None]
  - BACILLUS INFECTION [None]
  - BACTERIAL SEPSIS [None]
  - CARDIAC ARREST [None]
  - CEREBRAL HAEMORRHAGE [None]
  - DIARRHOEA [None]
  - MENINGITIS BACTERIAL [None]
  - PYREXIA [None]
  - RESPIRATORY ARREST [None]
  - SUBARACHNOID HAEMORRHAGE [None]
  - VOMITING [None]
  - WHITE BLOOD CELL COUNT DECREASED [None]
